FAERS Safety Report 25136104 (Version 1)
Quarter: 2025Q1

REPORT INFORMATION
  Report Type: Spontaneous
  Country: ES (occurrence: ES)
  Receive Date: 20250328
  Receipt Date: 20250328
  Transmission Date: 20250408
  Serious: Yes (Other)
  Sender: ORGANON
  Company Number: ES-ORGANON-O2503ESP002254

PATIENT
  Age: 21 Year
  Sex: Female

DRUGS (1)
  1. ETONOGESTREL [Suspect]
     Active Substance: ETONOGESTREL
     Route: 059
     Dates: start: 202407

REACTIONS (3)
  - Vaginal haemorrhage [Not Recovered/Not Resolved]
  - Medical device site discomfort [Not Recovered/Not Resolved]
  - Patient-device incompatibility [Not Recovered/Not Resolved]

NARRATIVE: CASE EVENT DATE: 20240701
